FAERS Safety Report 24961309 (Version 1)
Quarter: 2025Q1

REPORT INFORMATION
  Report Type: Spontaneous
  Country: ES (occurrence: ES)
  Receive Date: 20250212
  Receipt Date: 20250212
  Transmission Date: 20250408
  Serious: Yes (Hospitalization, Other)
  Sender: SANOFI AVENTIS
  Company Number: None

PATIENT
  Age: 83 Year
  Sex: Female

DRUGS (3)
  1. FLUCONAZOLE [Suspect]
     Active Substance: FLUCONAZOLE
     Indication: Systemic candida
     Dosage: 600 MG, QD
     Route: 048
     Dates: start: 20241213, end: 20241231
  2. RIFAMPIN [Suspect]
     Active Substance: RIFAMPIN
     Indication: Renal tuberculosis
     Dosage: 420 MG, QD (300MG + 6 ML SYRUP (120 MG)
     Route: 048
     Dates: start: 20240403, end: 20250108
  3. ISONIAZID [Suspect]
     Active Substance: ISONIAZID
     Indication: Renal tuberculosis
     Dosage: 300 MG, QD
     Route: 048
     Dates: start: 20240418, end: 20250108

REACTIONS (1)
  - Hepatic cytolysis [Recovered/Resolved]

NARRATIVE: CASE EVENT DATE: 20250104
